FAERS Safety Report 4322276-1 (Version None)
Quarter: 2004Q1

REPORT INFORMATION
  Report Type: 
  Country: None (occurrence: None)
  Receive Date: 20040319
  Receipt Date: 20040308
  Transmission Date: 20041129
  Serious: Yes (Other)
  Sender: FDA-Public Use
  Company Number: NSADSS2002033737

PATIENT
  Age: 68 Year
  Sex: Female

DRUGS (11)
  1. REMICADE [Suspect]
     Indication: RHEUMATOID ARTHRITIS
     Dosage: 3 MG/KG, INTRAVENOUS DRIP;  5 MG/KG, INTRAVENOUS DRIP
     Route: 041
     Dates: start: 20000209, end: 20011001
  2. REMICADE [Suspect]
     Indication: RHEUMATOID ARTHRITIS
     Dosage: 3 MG/KG, INTRAVENOUS DRIP;  5 MG/KG, INTRAVENOUS DRIP
     Route: 041
     Dates: start: 20011001, end: 20020717
  3. METHOTREXATE SODIUM [Concomitant]
  4. RELAFEN [Concomitant]
  5. VALIUM (DIZAEPAM) [Concomitant]
  6. LITHIUM CARBONATE [Concomitant]
  7. PREDNISONE [Concomitant]
  8. FOSAMAX [Concomitant]
  9. SYNTHROID [Concomitant]
  10. ZOCOR [Concomitant]
  11. CALCIUM WITH VITAMIN D (CALCIUM WITH VITAMIN D) [Concomitant]

REACTIONS (1)
  - LYMPHOCYTIC LEUKAEMIA [None]
